FAERS Safety Report 16414682 (Version 1)
Quarter: 2019Q2

REPORT INFORMATION
  Report Type: Spontaneous
  Country: US (occurrence: US)
  Receive Date: 20190611
  Receipt Date: 20190611
  Transmission Date: 20190711
  Serious: Yes (Hospitalization, Other)
  Sender: FDA-Public Use
  Company Number: US-ELI_LILLY_AND_COMPANY-US201906001014

PATIENT
  Sex: Male

DRUGS (2)
  1. HUMALOG [Suspect]
     Active Substance: INSULIN LISPRO
     Indication: PRODUCT USED FOR UNKNOWN INDICATION
     Dosage: UNK, PRN (UP TO 20 UNITS PER MEAL)
     Route: 065
     Dates: start: 2012
  2. TOUJEO [Concomitant]
     Active Substance: INSULIN GLARGINE
     Indication: PRODUCT USED FOR UNKNOWN INDICATION
     Dosage: 45 U, BID

REACTIONS (9)
  - Myocardial infarction [Recovered/Resolved]
  - Haematochezia [Recovering/Resolving]
  - Loss of consciousness [Recovered/Resolved]
  - Enzyme level increased [Unknown]
  - Blindness [Unknown]
  - Myocardial infarction [Recovering/Resolving]
  - Gastrointestinal ulcer [Unknown]
  - Altered state of consciousness [Unknown]
  - Hypoacusis [Unknown]

NARRATIVE: CASE EVENT DATE: 201812
